FAERS Safety Report 10569596 (Version 2)
Quarter: 2014Q4

REPORT INFORMATION
  Report Type: Spontaneous
  Country: BR (occurrence: BR)
  Receive Date: 20141106
  Receipt Date: 20141125
  Transmission Date: 20150529
  Serious: Yes (Other)
  Sender: FDA-Public Use
  Company Number: PHHY2014BR144818

PATIENT
  Sex: Female
  Weight: 57 kg

DRUGS (4)
  1. FORASEQ [Suspect]
     Active Substance: BUDESONIDE\FORMOTEROL FUMARATE
     Indication: EMPHYSEMA
     Dosage: 1 DF, QD
     Route: 055
  2. TIMOLOL [Concomitant]
     Active Substance: TIMOLOL
     Indication: GLAUCOMA
     Dosage: UNK, Q12H
     Route: 047
  3. FLUOXETINE [Concomitant]
     Active Substance: FLUOXETINE\FLUOXETINE HYDROCHLORIDE
     Indication: DEPRESSION
     Dosage: 1 DF, QD
     Route: 048
  4. TIMOLOL [Concomitant]
     Active Substance: TIMOLOL
     Dosage: UNK, Q12H
     Route: 047

REACTIONS (12)
  - Cushingoid [Unknown]
  - Pigmentation disorder [Recovering/Resolving]
  - Local swelling [Not Recovered/Not Resolved]
  - Thyroid disorder [Not Recovered/Not Resolved]
  - Weight increased [Not Recovered/Not Resolved]
  - Glaucoma [Unknown]
  - Gastritis [Unknown]
  - Swelling face [Not Recovered/Not Resolved]
  - Fatigue [Not Recovered/Not Resolved]
  - Blood creatine phosphokinase abnormal [Unknown]
  - Eye swelling [Not Recovered/Not Resolved]
  - Gastrooesophageal reflux disease [Recovering/Resolving]
